FAERS Safety Report 25225643 (Version 3)
Quarter: 2025Q2

REPORT INFORMATION
  Report Type: Report from Study
  Country: US (occurrence: US)
  Receive Date: 20250422
  Receipt Date: 20250523
  Transmission Date: 20250716
  Serious: Yes (Hospitalization, Other)
  Sender: TAKEDA
  Company Number: US-TAKEDA-2025TUS038361

PATIENT
  Sex: Male
  Weight: 81 kg

DRUGS (1)
  1. FRUQUINTINIB [Suspect]
     Active Substance: FRUQUINTINIB
     Indication: Rectal cancer

REACTIONS (5)
  - Abdominal wall haemorrhage [Unknown]
  - Gastric haemorrhage [Unknown]
  - Peripheral swelling [Unknown]
  - Diarrhoea [Recovering/Resolving]
  - Asthenia [Unknown]
